FAERS Safety Report 12116819 (Version 1)
Quarter: 2016Q1

REPORT INFORMATION
  Report Type: Spontaneous
  Country: GB (occurrence: GB)
  Receive Date: 20160225
  Receipt Date: 20160225
  Transmission Date: 20160526
  Serious: Yes (Other)
  Sender: FDA-Public Use
  Company Number: GB-LUNDBECK-DKLU2010401

PATIENT
  Age: 67 Year
  Sex: Female

DRUGS (2)
  1. FRISIUM [Suspect]
     Active Substance: CLOBAZAM
     Indication: PRODUCT USED FOR UNKNOWN INDICATION
     Route: 065
  2. EPILIM EC [Suspect]
     Active Substance: VALPROATE SODIUM
     Indication: TEMPORAL LOBE EPILEPSY
     Route: 048

REACTIONS (6)
  - Abnormal sleep-related event [Not Recovered/Not Resolved]
  - Seizure [Unknown]
  - Eye contusion [Unknown]
  - Somnambulism [Not Recovered/Not Resolved]
  - Amnesia [Not Recovered/Not Resolved]
  - Epilepsy [Unknown]
